FAERS Safety Report 24339239 (Version 3)
Quarter: 2024Q4

REPORT INFORMATION
  Report Type: Spontaneous
  Country: US (occurrence: US)
  Receive Date: 20240919
  Receipt Date: 20241007
  Transmission Date: 20250115
  Serious: Yes (Hospitalization)
  Sender: PFIZER
  Company Number: US-MLMSERVICE-20240911-PI187763-00175-5

PATIENT
  Age: 89 Year
  Sex: Male
  Weight: 76.3 kg

DRUGS (3)
  1. HEPARIN SODIUM [Suspect]
     Active Substance: HEPARIN SODIUM
     Indication: Thrombosis prophylaxis
     Dosage: 5000 IU, 3X/DAY
     Route: 058
  2. HEPARIN SODIUM [Suspect]
     Active Substance: HEPARIN SODIUM
     Dosage: 5000 IU, 2X/DAY
     Route: 058
  3. CLOPIDOGREL [Concomitant]
     Active Substance: CLOPIDOGREL BISULFATE
     Indication: Mesenteric artery thrombosis
     Dosage: UNK

REACTIONS (6)
  - Blood urea increased [Unknown]
  - Blood loss anaemia [Recovering/Resolving]
  - Coagulopathy [Recovered/Resolved]
  - Blood creatinine increased [Unknown]
  - Haematoma muscle [Recovering/Resolving]
  - Platelet count decreased [Unknown]
